FAERS Safety Report 5975741-5 (Version None)
Quarter: 2008Q4

REPORT INFORMATION
  Report Type: 
  Country: None (occurrence: None)
  Receive Date: 20081202
  Receipt Date: 20081125
  Transmission Date: 20090506
  Serious: Yes (Hospitalization)
  Sender: FDA-Public Use
  Company Number: JP-AVENTIS-200813623JP

PATIENT
  Age: 81 Year
  Sex: Female

DRUGS (5)
  1. TAXOTERE [Suspect]
     Indication: LUNG ADENOCARCINOMA
     Route: 041
     Dates: start: 20070829, end: 20070829
  2. TAXOTERE [Suspect]
     Route: 041
     Dates: start: 20071002, end: 20071002
  3. TAXOTERE [Suspect]
     Route: 041
     Dates: start: 20071026, end: 20071026
  4. RADIOTHERAPY [Suspect]
     Dosage: DOSE: 30GY/TOTAL
     Dates: start: 20070815, end: 20070828
  5. IRESSA [Concomitant]
     Indication: LUNG ADENOCARCINOMA
     Route: 048
     Dates: start: 20080307

REACTIONS (2)
  - ALTERED STATE OF CONSCIOUSNESS [None]
  - LEUKOENCEPHALOPATHY [None]
